FAERS Safety Report 5939710-3 (Version None)
Quarter: 2008Q4

REPORT INFORMATION
  Report Type: 
  Country: None (occurrence: None)
  Receive Date: 20081030
  Receipt Date: 20081030
  Transmission Date: 20090506
  Serious: Yes (Disabling)
  Sender: FDA-Public Use
  Company Number: None

PATIENT
  Sex: Female
  Weight: 108.4097 kg

DRUGS (1)
  1. LEVAQUIN [Suspect]
     Indication: UPPER RESPIRATORY TRACT INFECTION
     Dosage: LEVOQUIN 750MG DAILY ORAL
     Route: 048
     Dates: start: 20070715

REACTIONS (5)
  - ARTHRALGIA [None]
  - DYSSTASIA [None]
  - GAIT DISTURBANCE [None]
  - IMPAIRED WORK ABILITY [None]
  - PAIN IN EXTREMITY [None]
